FAERS Safety Report 9834191 (Version 1)
Quarter: 2014Q1

REPORT INFORMATION
  Report Type: Report from Study
  Country: FR (occurrence: FR)
  Receive Date: 20140122
  Receipt Date: 20140122
  Transmission Date: 20141002
  Serious: Yes (Hospitalization)
  Sender: FDA-Public Use
  Company Number: FR-ASTELLAS-2014US000604

PATIENT
  Age: 70 Year
  Sex: Female

DRUGS (2)
  1. ERLOTINIB TABLET [Suspect]
     Indication: ADENOCARCINOMA PANCREAS
     Dosage: 100 MG, UNKNOWN/D
     Route: 048
     Dates: start: 20110609, end: 20110713
  2. GEMZAR [Suspect]
     Indication: ADENOCARCINOMA PANCREAS
     Dosage: UNK
     Route: 065
     Dates: start: 20110609, end: 20110713

REACTIONS (2)
  - Lung disorder [Unknown]
  - Pyrexia [Unknown]
